FAERS Safety Report 4599341-7 (Version None)
Quarter: 2005Q1

REPORT INFORMATION
  Report Type: 
  Country: None (occurrence: None)
  Receive Date: 20050302
  Receipt Date: 20050302
  Transmission Date: 20050727
  Serious: Yes (Life-Threatening)
  Sender: FDA-Public Use
  Company Number: None

PATIENT
  Age: 58 Year
  Sex: Female

DRUGS (1)
  1. PHENYTOIN [Suspect]
     Indication: CONVULSION
     Dosage: 3 Q D
     Dates: start: 20040601

REACTIONS (2)
  - CONVULSION [None]
  - DRUG LEVEL DECREASED [None]
